FAERS Safety Report 19743071 (Version 1)
Quarter: 2021Q3

REPORT INFORMATION
  Report Type: Spontaneous
  Country: CN (occurrence: CN)
  Receive Date: 20210824
  Receipt Date: 20210824
  Transmission Date: 20211014
  Serious: Yes (Hospitalization, Other)
  Sender: FDA-Public Use
  Company Number: CN-OTSUKA-2021_029061

PATIENT
  Age: 13 Year
  Sex: Male
  Weight: 52 kg

DRUGS (4)
  1. BUSULFEX [Suspect]
     Active Substance: BUSULFAN
     Indication: CHEMOTHERAPY
     Dosage: 40 MG, QID
     Route: 042
     Dates: start: 20210326, end: 20210329
  2. ENDOXAN [CYCLOPHOSPHAMIDE] [Suspect]
     Active Substance: CYCLOPHOSPHAMIDE
     Indication: CHEMOTHERAPY
     Dosage: 2 G, QD
     Route: 042
     Dates: start: 20210330, end: 20210331
  3. FLUDARABINE [Suspect]
     Active Substance: FLUDARABINE PHOSPHATE
     Indication: CHEMOTHERAPY
     Dosage: 47 MG, QD
     Route: 042
     Dates: start: 20210401, end: 20210403
  4. CYTARABINE HYDROCHLORIDE [Suspect]
     Active Substance: CYTARABINE HYDROCHLORIDE
     Indication: CHEMOTHERAPY
     Dosage: 3 G, QD
     Route: 042
     Dates: start: 20210401, end: 20210403

REACTIONS (4)
  - Product use in unapproved indication [Unknown]
  - Agranulocytosis [Recovering/Resolving]
  - Infection [Recovering/Resolving]
  - Pyrexia [Recovering/Resolving]

NARRATIVE: CASE EVENT DATE: 20210326
